FAERS Safety Report 6957703-4 (Version None)
Quarter: 2010Q3

REPORT INFORMATION
  Report Type: 
  Country: None (occurrence: None)
  Receive Date: 20100831
  Receipt Date: 20100819
  Transmission Date: 20110219
  Serious: Yes (Hospitalization)
  Sender: FDA-Public Use
  Company Number: US-SANOFI-AVENTIS-2010SA050105

PATIENT
  Sex: Female

DRUGS (6)
  1. PLAVIX [Suspect]
     Route: 048
     Dates: start: 20000101
  2. PRILOSEC [Concomitant]
     Route: 065
     Dates: start: 19940101, end: 20100101
  3. RANITIDINE [Concomitant]
  4. SYNTHROID [Concomitant]
  5. HYDROCHLOROTHIAZIDE [Concomitant]
  6. LISINOPRIL [Concomitant]

REACTIONS (5)
  - ARTHROPATHY [None]
  - BACK DISORDER [None]
  - DYSPEPSIA [None]
  - OSTEOARTHRITIS [None]
  - VITAMIN D DEFICIENCY [None]
